FAERS Safety Report 4911136-0 (Version None)
Quarter: 2006Q1

REPORT INFORMATION
  Report Type: 
  Country: None (occurrence: None)
  Receive Date: 20060209
  Receipt Date: 20060131
  Transmission Date: 20060701
  Serious: Yes (Death, Hospitalization, Congenital Anomaly)
  Sender: FDA-Public Use
  Company Number: 2006-00383

PATIENT
  Sex: Female
  Weight: 3 kg

DRUGS (4)
  1. FOLIC ACID [Suspect]
     Dosage: TRANSPLACENTAL
     Route: 064
     Dates: start: 20040517, end: 20050105
  2. URBANYL (CLOBAZAM) [Suspect]
     Dosage: TRANSPLACENTAL
     Route: 064
     Dates: start: 20040418, end: 20050105
  3. DEPAKENE [Suspect]
     Dosage: TRANSPLACENTAL
     Route: 064
     Dates: start: 20040418, end: 20050105
  4. KEPPRA [Suspect]
     Dosage: 2 G, TRANSPLACENTAL
     Route: 064
     Dates: start: 20040418, end: 20040517

REACTIONS (11)
  - AMYOTROPHY [None]
  - ANORECTAL AGENESIS [None]
  - CAESAREAN SECTION [None]
  - CEREBRAL VENTRICLE DILATATION [None]
  - DRUG EXPOSURE DURING PREGNANCY [None]
  - MENINGOMYELOCELE [None]
  - MULTIPLE CONGENITAL ABNORMALITIES [None]
  - NEONATAL DISORDER [None]
  - PARAPARESIS [None]
  - TALIPES [None]
  - TOE DEFORMITY [None]
